FAERS Safety Report 8103200-2 (Version None)
Quarter: 2012Q1

REPORT INFORMATION
  Report Type: 
  Country: None (occurrence: None)
  Receive Date: 20120201
  Receipt Date: 20120127
  Transmission Date: 20120608
  Serious: Yes (Hospitalization)
  Sender: FDA-Public Use
  Company Number: DK-COVIDIEN/TYCO HEALTHCARE/MALLINCKRODT-T201200521

PATIENT
  Sex: Male

DRUGS (1)
  1. OPTIRAY 160 [Suspect]
     Dosage: UNK UNK, SINGLE
     Route: 042
     Dates: start: 20111222, end: 20111222

REACTIONS (3)
  - HYPERSENSITIVITY [None]
  - RHINITIS [None]
  - RASH [None]
